FAERS Safety Report 9734716 (Version 1)
Quarter: 2013Q4

REPORT INFORMATION
  Report Type: Spontaneous
  Country: CA (occurrence: CA)
  Receive Date: 20131206
  Receipt Date: 20131206
  Transmission Date: 20140711
  Serious: Yes (Hospitalization)
  Sender: FDA-Public Use
  Company Number: CA-ROCHE-1311026

PATIENT
  Age: 64 Year
  Sex: Female

DRUGS (4)
  1. PEGASYS [Suspect]
     Indication: HEPATITIS C
     Route: 058
     Dates: start: 20130425
  2. RIBAVIRIN [Suspect]
     Indication: HEPATITIS C
     Dosage: 200 - 1000 (VARIOUS DOSES)
     Route: 065
     Dates: start: 20130425
  3. VICTRELIS [Suspect]
     Indication: HEPATITIS C
     Route: 065
     Dates: start: 20130523
  4. EPREX [Concomitant]
     Route: 065
     Dates: start: 20130714

REACTIONS (2)
  - Sepsis [Unknown]
  - Intestinal obstruction [Unknown]
